FAERS Safety Report 16337411 (Version 2)
Quarter: 2019Q2

REPORT INFORMATION
  Report Type: Report from Study
  Country: US (occurrence: US)
  Receive Date: 20190521
  Receipt Date: 20190605
  Transmission Date: 20190711
  Serious: Yes (Hospitalization)
  Sender: FDA-Public Use
  Company Number: US-PFIZER INC-2019210107

PATIENT
  Age: 16 Year
  Sex: Male
  Weight: 107.2 kg

DRUGS (7)
  1. VINCRISTINE SULFATE. [Suspect]
     Active Substance: VINCRISTINE SULFATE
     Indication: B PRECURSOR TYPE ACUTE LEUKAEMIA
     Dosage: 2 MG, ONCE
     Route: 042
     Dates: start: 20190315
  2. CYCLOPHOSPHAMIDE. [Suspect]
     Active Substance: CYCLOPHOSPHAMIDE
     Dosage: 2300 MG, ONCE
     Route: 042
     Dates: start: 20190408
  3. MERCAPTOPURINE. [Suspect]
     Active Substance: MERCAPTOPURINE
     Indication: B PRECURSOR TYPE ACUTE LEUKAEMIA
     Dosage: 125 MILLIGRAM, MON-THU/150 MILLIGRAM FRI - SUN
     Route: 048
     Dates: start: 20190221
  4. CYCLOPHOSPHAMIDE. [Suspect]
     Active Substance: CYCLOPHOSPHAMIDE
     Indication: B PRECURSOR TYPE ACUTE LEUKAEMIA
     Dosage: 2280 MG, ONCE
     Route: 042
     Dates: start: 20190221, end: 20190221
  5. CYTARABINE. [Suspect]
     Active Substance: CYTARABINE
     Indication: B PRECURSOR TYPE ACUTE LEUKAEMIA
     Dosage: 171 MG X 4 DAYS
     Route: 042
     Dates: start: 20190221, end: 20190311
  6. CYTARABINE. [Suspect]
     Active Substance: CYTARABINE
     Dosage: 173 MG X 4 DAYS
     Route: 042
     Dates: start: 20190408
  7. INCB018424 [Suspect]
     Active Substance: RUXOLITINIB
     Indication: B PRECURSOR TYPE ACUTE LEUKAEMIA
     Dosage: 100 MG, BID
     Route: 048
     Dates: start: 20190221

REACTIONS (1)
  - Febrile neutropenia [Recovered/Resolved]

NARRATIVE: CASE EVENT DATE: 20190425
